FAERS Safety Report 9360153 (Version 2)
Quarter: 2013Q3

REPORT INFORMATION
  Report Type: Spontaneous
  Country: US (occurrence: US)
  Receive Date: 20130621
  Receipt Date: 20130723
  Transmission Date: 20140515
  Serious: Yes (Other)
  Sender: FDA-Public Use
  Company Number: US-BIOGENIDEC-2013BI052286

PATIENT
  Age: 61 Year
  Sex: Female

DRUGS (10)
  1. TECFIDERA [Suspect]
     Indication: MULTIPLE SCLEROSIS
     Route: 048
     Dates: start: 20130418, end: 20130424
  2. TECFIDERA [Suspect]
     Indication: MULTIPLE SCLEROSIS
     Route: 048
     Dates: start: 20130425, end: 20130601
  3. TECFIDERA [Suspect]
     Indication: MULTIPLE SCLEROSIS
  4. TYLENOL #3 [Concomitant]
  5. D-AMPHETAMINE [Concomitant]
  6. CLONAZEPAM [Concomitant]
  7. PROPRANALOL [Concomitant]
  8. ZOLPIDEM [Concomitant]
  9. TOPAMAX [Concomitant]
  10. FLUOXETINE [Concomitant]

REACTIONS (4)
  - Nausea [Unknown]
  - Diarrhoea [Unknown]
  - Suicidal ideation [Recovered/Resolved]
  - Depression [Recovered/Resolved]
